FAERS Safety Report 8477515 (Version 3)
Quarter: 2013Q1

REPORT INFORMATION
  Report Type: Spontaneous
  Country: JP (occurrence: None)
  Receive Date: 20120316
  Receipt Date: 20130313
  Transmission Date: 20140127
  Serious: Yes (Life-Threatening, Hospitalization, Disabling, Other)
  Sender: FDA-Public Use
  Company Number: TCI2012A01027

PATIENT
  Age: 66 Year
  Sex: Male

DRUGS (4)
  1. ACTOS [Suspect]
     Indication: TYPE 1 DIABETES MELLITUS
     Dosage: 30 MG (30 MG,1 D) PER ORAL
     Route: 048
     Dates: end: 20080910
  2. LANTUS SOLOSTAR (INSULIN GLARGINE) [Suspect]
     Indication: TYPE 1 DIABETES MELLITUS
     Dosage: 27 UT 1IN 1D
     Route: 058
     Dates: start: 20081119, end: 2011
  3. HUMALOG (INSULIN LISPRO) [Suspect]
     Indication: TYPE 1 DIABETES MELLITUS
     Dosage: MORNING 27 UT, LUNCHTIME 44 UT, AND EVENING 30 UT (101 UT, 3 IN 1 D)
     Route: 058
     Dates: start: 20090930, end: 2011
  4. LIPITOR (ATORVASTATIN CALCIUM) [Concomitant]

REACTIONS (1)
  - Malignant neoplasm of renal pelvis [None]
